FAERS Safety Report 21139775 (Version 2)
Quarter: 2022Q3

REPORT INFORMATION
  Report Type: Spontaneous
  Country: JP (occurrence: JP)
  Receive Date: 20220728
  Receipt Date: 20220824
  Transmission Date: 20221026
  Serious: Yes (Death)
  Sender: FDA-Public Use
  Company Number: JP-SUN PHARMACEUTICAL INDUSTRIES LTD-2022R1-346399

PATIENT
  Age: 65 Year
  Sex: Male

DRUGS (4)
  1. OXALIPLATIN [Suspect]
     Active Substance: OXALIPLATIN
     Indication: Rectal cancer stage IV
     Dosage: UNK
     Route: 065
     Dates: start: 200801
  2. LEUCOVORIN CALCIUM [Suspect]
     Active Substance: LEUCOVORIN CALCIUM
     Indication: Rectal cancer stage IV
     Dosage: UNK
     Route: 065
     Dates: start: 200801
  3. IRINOTECAN [Suspect]
     Active Substance: IRINOTECAN
     Indication: Rectal cancer stage IV
     Dosage: UNK
     Route: 065
     Dates: start: 200801
  4. FLUOROURACIL [Suspect]
     Active Substance: FLUOROURACIL
     Indication: Rectal cancer stage IV
     Dosage: UNK
     Route: 065
     Dates: start: 200801

REACTIONS (3)
  - Metastases to meninges [Fatal]
  - Disease progression [Fatal]
  - Metastases to peritoneum [Fatal]
